FAERS Safety Report 11349414 (Version 3)
Quarter: 2015Q4

REPORT INFORMATION
  Report Type: Spontaneous
  Country: US (occurrence: US)
  Receive Date: 20150807
  Receipt Date: 20151125
  Transmission Date: 20160304
  Serious: Yes (Other)
  Sender: FDA-Public Use
  Company Number: US-ROCHE-1617283

PATIENT
  Sex: Female
  Weight: 59.02 kg

DRUGS (1)
  1. ESBRIET [Suspect]
     Active Substance: PIRFENIDONE
     Indication: IDIOPATHIC PULMONARY FIBROSIS
     Dosage: 2 CAPSULES THREE TIMES A DAY
     Route: 048
     Dates: start: 20150212

REACTIONS (4)
  - Staphylococcal infection [Unknown]
  - Right ventricular failure [Unknown]
  - Pulmonary arterial hypertension [Unknown]
  - Fatigue [Unknown]
